FAERS Safety Report 5070767-0 (Version None)
Quarter: 2006Q3

REPORT INFORMATION
  Report Type: 
  Country: None (occurrence: None)
  Receive Date: 20060804
  Receipt Date: 20060628
  Transmission Date: 20061208
  Serious: Yes (Disabling, Other)
  Sender: FDA-Public Use
  Company Number: CA-BAYER-200612734GDS

PATIENT
  Age: 54 Year
  Sex: Female
  Weight: 24 kg

DRUGS (1)
  1. AVELOX [Suspect]
     Indication: BRONCHOPNEUMONIA
     Dosage: TOTAL DAILY DOSE: 400 MG  UNIT DOSE: 400 MG
     Route: 048
     Dates: start: 20051106, end: 20051115

REACTIONS (3)
  - ARTHRALGIA [None]
  - CREPITATIONS [None]
  - OEDEMA [None]
